FAERS Safety Report 9935844 (Version 1)
Quarter: 2014Q1

REPORT INFORMATION
  Report Type: Spontaneous
  Country: US (occurrence: US)
  Receive Date: 20140228
  Receipt Date: 20140228
  Transmission Date: 20141002
  Serious: No
  Sender: FDA-Public Use
  Company Number: US-AMGEN-USASP2013071681

PATIENT
  Age: 43 Year
  Sex: Female
  Weight: 99.77 kg

DRUGS (5)
  1. ENBREL [Suspect]
     Indication: PRODUCT USED FOR UNKNOWN INDICATION
     Dosage: 50 MG, WEEKLY
     Route: 058
  2. LEXAPRO [Concomitant]
     Dosage: 10 MG, UNK
  3. LAMICTAL [Concomitant]
     Dosage: 100 MG, UNK
  4. GABAPENTIN [Concomitant]
     Dosage: 300 MG, UNK
  5. ALLEGRA [Concomitant]
     Dosage: 180 MG, UNK

REACTIONS (2)
  - Skin ulcer [Unknown]
  - Impaired healing [Unknown]
